FAERS Safety Report 24257807 (Version 1)
Quarter: 2024Q3

REPORT INFORMATION
  Report Type: Spontaneous
  Country: US (occurrence: US)
  Receive Date: 20240828
  Receipt Date: 20240828
  Transmission Date: 20241017
  Serious: No
  Sender: ELI LILLY AND CO
  Company Number: US-ELI_LILLY_AND_COMPANY-US202408017119

PATIENT
  Age: 58 Year
  Sex: Female

DRUGS (32)
  1. MOUNJARO [Suspect]
     Active Substance: TIRZEPATIDE
     Indication: Glycosylated haemoglobin
     Dosage: 2.5 MG, UNKNOWN
     Route: 058
  2. MOUNJARO [Suspect]
     Active Substance: TIRZEPATIDE
     Indication: Glycosylated haemoglobin
     Dosage: 2.5 MG, UNKNOWN
     Route: 058
  3. MOUNJARO [Suspect]
     Active Substance: TIRZEPATIDE
     Indication: Glycosylated haemoglobin
     Dosage: 2.5 MG, UNKNOWN
     Route: 058
  4. MOUNJARO [Suspect]
     Active Substance: TIRZEPATIDE
     Indication: Glycosylated haemoglobin
     Dosage: 2.5 MG, UNKNOWN
     Route: 058
  5. MOUNJARO [Suspect]
     Active Substance: TIRZEPATIDE
     Indication: Haemoglobin increased
  6. MOUNJARO [Suspect]
     Active Substance: TIRZEPATIDE
     Indication: Haemoglobin increased
  7. MOUNJARO [Suspect]
     Active Substance: TIRZEPATIDE
     Indication: Haemoglobin increased
  8. MOUNJARO [Suspect]
     Active Substance: TIRZEPATIDE
     Indication: Haemoglobin increased
  9. MOUNJARO [Suspect]
     Active Substance: TIRZEPATIDE
     Indication: Glucose tolerance impaired
  10. MOUNJARO [Suspect]
     Active Substance: TIRZEPATIDE
     Indication: Glucose tolerance impaired
  11. MOUNJARO [Suspect]
     Active Substance: TIRZEPATIDE
     Indication: Glucose tolerance impaired
  12. MOUNJARO [Suspect]
     Active Substance: TIRZEPATIDE
     Indication: Glucose tolerance impaired
  13. MOUNJARO [Suspect]
     Active Substance: TIRZEPATIDE
     Indication: Weight control
  14. MOUNJARO [Suspect]
     Active Substance: TIRZEPATIDE
     Indication: Weight control
  15. MOUNJARO [Suspect]
     Active Substance: TIRZEPATIDE
     Indication: Weight control
  16. MOUNJARO [Suspect]
     Active Substance: TIRZEPATIDE
     Indication: Weight control
  17. MOUNJARO [Suspect]
     Active Substance: TIRZEPATIDE
     Indication: Glycosylated haemoglobin
     Dosage: 5 MG, UNKNOWN
     Route: 058
  18. MOUNJARO [Suspect]
     Active Substance: TIRZEPATIDE
     Indication: Glycosylated haemoglobin
     Dosage: 5 MG, UNKNOWN
     Route: 058
  19. MOUNJARO [Suspect]
     Active Substance: TIRZEPATIDE
     Indication: Glycosylated haemoglobin
     Dosage: 5 MG, UNKNOWN
     Route: 058
  20. MOUNJARO [Suspect]
     Active Substance: TIRZEPATIDE
     Indication: Glycosylated haemoglobin
     Dosage: 5 MG, UNKNOWN
     Route: 058
  21. MOUNJARO [Suspect]
     Active Substance: TIRZEPATIDE
     Indication: Haemoglobin increased
  22. MOUNJARO [Suspect]
     Active Substance: TIRZEPATIDE
     Indication: Haemoglobin increased
  23. MOUNJARO [Suspect]
     Active Substance: TIRZEPATIDE
     Indication: Haemoglobin increased
  24. MOUNJARO [Suspect]
     Active Substance: TIRZEPATIDE
     Indication: Haemoglobin increased
  25. MOUNJARO [Suspect]
     Active Substance: TIRZEPATIDE
     Indication: Glucose tolerance impaired
  26. MOUNJARO [Suspect]
     Active Substance: TIRZEPATIDE
     Indication: Glucose tolerance impaired
  27. MOUNJARO [Suspect]
     Active Substance: TIRZEPATIDE
     Indication: Glucose tolerance impaired
  28. MOUNJARO [Suspect]
     Active Substance: TIRZEPATIDE
     Indication: Glucose tolerance impaired
  29. MOUNJARO [Suspect]
     Active Substance: TIRZEPATIDE
     Indication: Weight control
  30. MOUNJARO [Suspect]
     Active Substance: TIRZEPATIDE
     Indication: Weight control
  31. MOUNJARO [Suspect]
     Active Substance: TIRZEPATIDE
     Indication: Weight control
  32. MOUNJARO [Suspect]
     Active Substance: TIRZEPATIDE
     Indication: Weight control

REACTIONS (3)
  - Incorrect dose administered [Unknown]
  - Off label use [Unknown]
  - Injection site pain [Unknown]
